FAERS Safety Report 16704843 (Version 1)
Quarter: 2019Q3

REPORT INFORMATION
  Report Type: Spontaneous
  Country: AU (occurrence: AU)
  Receive Date: 20190814
  Receipt Date: 20190814
  Transmission Date: 20191004
  Serious: Yes (Hospitalization, Other)
  Sender: FDA-Public Use
  Company Number: PHHY2019AU186273

PATIENT
  Age: 56 Year
  Sex: Female

DRUGS (2)
  1. GILENYA [Suspect]
     Active Substance: FINGOLIMOD HYDROCHLORIDE
     Indication: RELAPSING-REMITTING MULTIPLE SCLEROSIS
     Dosage: 0.5 MG, QD
     Route: 065
     Dates: start: 20170202, end: 20190622
  2. ESTRADIOL. [Concomitant]
     Active Substance: ESTRADIOL
     Indication: MENOPAUSAL SYMPTOMS
     Dosage: UNK, QD, (1 MG/5MG)
     Route: 048

REACTIONS (9)
  - Abdominal pain [Recovered/Resolved with Sequelae]
  - Neutropenia [Unknown]
  - Lymphogranuloma venereum [Unknown]
  - Granuloma [Unknown]
  - Lymphopenia [Unknown]
  - Urinary incontinence [Unknown]
  - Granulomatous lymphadenitis [Unknown]
  - Vaginal infection [Unknown]
  - Cholelithiasis [Unknown]

NARRATIVE: CASE EVENT DATE: 20190130
